FAERS Safety Report 8623339-2 (Version None)
Quarter: 2012Q3

REPORT INFORMATION
  Report Type: 
  Country: None (occurrence: None)
  Receive Date: 20120827
  Receipt Date: 20120823
  Transmission Date: 20120928
  Serious: Yes (Hospitalization)
  Sender: FDA-Public Use
  Company Number: FR-AMGEN-FRACT2012047291

PATIENT
  Age: 55 Year
  Sex: Male
  Weight: 70 kg

DRUGS (13)
  1. VECTIBIX [Suspect]
     Indication: TRANSITIONAL CELL CARCINOMA
     Dosage: 420 MG, UNK
     Dates: start: 20120530
  2. PREDNISONE TAB [Concomitant]
     Dosage: UNK
     Route: 048
  3. CACIT D3 [Concomitant]
     Indication: HYPOCALCAEMIA
     Dosage: UNK
     Route: 048
  4. DUPHALAC [Concomitant]
     Indication: CONSTIPATION
     Dosage: UNK
     Route: 048
  5. DOXORUBICIN HYDROCHLORIDE [Concomitant]
     Indication: TRANSITIONAL CELL CARCINOMA
     Dosage: 53 MG, UNK
     Route: 042
     Dates: start: 20120530
  6. CISPLATIN [Concomitant]
     Indication: TRANSITIONAL CELL CARCINOMA
     Dosage: 123 MG, UNK
     Route: 042
     Dates: start: 20120530
  7. OXYCODONE HYDROCHLORIDE [Concomitant]
     Indication: PAIN
     Dosage: UNK
     Route: 048
  8. OLMESARTAN MEDOXOMIL [Concomitant]
     Indication: HYPERTENSION
     Dosage: UNK
     Route: 048
  9. METHOTREXATE [Concomitant]
     Indication: TRANSITIONAL CELL CARCINOMA
     Dosage: 53 MG, UNK
     Route: 042
     Dates: start: 20120529
  10. RYTHMOL [Concomitant]
     Indication: ARRHYTHMIA
     Dosage: UNK
     Route: 048
  11. PYOSTACINE [Concomitant]
     Dosage: UNK
     Dates: start: 20120701
  12. VINBLASTINE SULFATE [Concomitant]
     Indication: TRANSITIONAL CELL CARCINOMA
     Dosage: 5.24 MG, UNK
     Route: 042
     Dates: start: 20120530
  13. NEXIUM [Concomitant]
     Indication: ABDOMINAL PAIN UPPER
     Dosage: UNK
     Route: 048

REACTIONS (1)
  - FEBRILE BONE MARROW APLASIA [None]
